FAERS Safety Report 14949324 (Version 2)
Quarter: 2018Q2

REPORT INFORMATION
  Report Type: Report from Study
  Country: SA (occurrence: SA)
  Receive Date: 20180529
  Receipt Date: 20180613
  Transmission Date: 20180711
  Serious: Yes (Hospitalization, Other)
  Sender: FDA-Public Use
  Company Number: SA-APOPHARMA-2018AP013756

PATIENT
  Age: 33 Year
  Sex: Female
  Weight: 78 kg

DRUGS (5)
  1. HYDROXYUREA. [Suspect]
     Active Substance: HYDROXYUREA
     Dosage: UNK
  2. AUGMENTIN [Suspect]
     Active Substance: AMOXICILLIN\CLAVULANATE POTASSIUM
     Indication: ANAL FISSURE
     Dosage: UNK
     Route: 065
     Dates: start: 20180509, end: 20180513
  3. DEFERIPRONE [Suspect]
     Active Substance: DEFERIPRONE
     Indication: SICKLE CELL ANAEMIA
     Dosage: 25 MG/KG, TID
     Route: 048
     Dates: start: 20180328, end: 20180515
  4. HYDROXYUREA. [Suspect]
     Active Substance: HYDROXYUREA
     Indication: SICKLE CELL DISEASE
     Dosage: 500 MG, BID
     Route: 048
     Dates: start: 20180328, end: 20180515
  5. MEFENAMIC ACID. [Suspect]
     Active Substance: MEFENAMIC ACID
     Indication: PRODUCT USED FOR UNKNOWN INDICATION
     Route: 065

REACTIONS (2)
  - Neutropenia [Recovered/Resolved]
  - Thrombocytopenia [Recovered/Resolved]

NARRATIVE: CASE EVENT DATE: 20180514
